FAERS Safety Report 8013121-1 (Version None)
Quarter: 2011Q4

REPORT INFORMATION
  Report Type: 
  Country: None (occurrence: None)
  Receive Date: 20111229
  Receipt Date: 20111226
  Transmission Date: 20120403
  Serious: Yes (Hospitalization)
  Sender: FDA-Public Use
  Company Number: FR-JNJFOC-20111112212

PATIENT
  Age: 59 Year
  Sex: Female

DRUGS (5)
  1. CARBOCISTEINA XAROPE (CARBOCYSTEINE) [Concomitant]
     Route: 065
  2. FLUTICASONE PROPIONATE/SALMETEROL [Concomitant]
     Route: 065
  3. SPIRIVA [Concomitant]
     Route: 065
  4. ACETAMINOPHEN [Concomitant]
     Route: 065
  5. LEVOFLOXACIN [Suspect]
     Indication: ASTHMA
     Route: 048
     Dates: start: 20110715, end: 20110720

REACTIONS (4)
  - RESPIRATORY FAILURE [None]
  - VERTIGO [None]
  - MALAISE [None]
  - MUSCULAR WEAKNESS [None]
